FAERS Safety Report 25792986 (Version 1)
Quarter: 2025Q3

REPORT INFORMATION
  Report Type: Spontaneous
  Country: US (occurrence: None)
  Receive Date: 20250911
  Receipt Date: 20250911
  Transmission Date: 20251021
  Serious: No
  Sender: INCYTE
  Company Number: US-INCYTE CORPORATION-2025IN009627

PATIENT
  Age: 56 Year

DRUGS (1)
  1. JAKAFI [Suspect]
     Active Substance: RUXOLITINIB
     Indication: Product used for unknown indication
     Dosage: 5 MILLIGRAM, BID

REACTIONS (6)
  - Insomnia [Unknown]
  - Petechiae [Unknown]
  - Nausea [Unknown]
  - Myalgia [Unknown]
  - Urinary tract infection [Unknown]
  - Fatigue [Unknown]
